FAERS Safety Report 4635087-4 (Version None)
Quarter: 2005Q2

REPORT INFORMATION
  Report Type: 
  Country: None (occurrence: None)
  Receive Date: 20050411
  Receipt Date: 20050329
  Transmission Date: 20051028
  Serious: Yes (Other)
  Sender: FDA-Public Use
  Company Number: HQWYE544330MAR05

PATIENT
  Age: 48 Year
  Sex: Female
  Weight: 54.93 kg

DRUGS (2)
  1. PREMPRO [Suspect]
     Indication: MENOPAUSE
     Dosage: 0.45MG/1.5MG TABLET DAILY, ORAL
     Route: 048
     Dates: start: 20040701, end: 20050326
  2. PHENOBARBITAL TAB [Concomitant]

REACTIONS (2)
  - HEADACHE [None]
  - LUNG NEOPLASM MALIGNANT [None]
